FAERS Safety Report 7277183-1 (Version None)
Quarter: 2011Q1

REPORT INFORMATION
  Report Type: 
  Country: None (occurrence: None)
  Receive Date: 20110202
  Receipt Date: 20110202
  Transmission Date: 20110831
  Serious: Yes (Life-Threatening)
  Sender: FDA-Public Use
  Company Number: None

PATIENT
  Age: 86 Year
  Sex: Female
  Weight: 145.151 kg

DRUGS (1)
  1. FENTANYL [Suspect]

REACTIONS (7)
  - COLD SWEAT [None]
  - BLOOD PRESSURE DECREASED [None]
  - CYSTITIS [None]
  - PNEUMONIA [None]
  - KIDNEY INFECTION [None]
  - SOMNOLENCE [None]
  - DISORIENTATION [None]
